FAERS Safety Report 11243888 (Version 5)
Quarter: 2016Q2

REPORT INFORMATION
  Report Type: Spontaneous
  Country: US (occurrence: US)
  Receive Date: 20150707
  Receipt Date: 20160525
  Transmission Date: 20160815
  Serious: Yes (Death, Other)
  Sender: FDA-Public Use
  Company Number: US-PFIZER INC-2015215850

PATIENT
  Age: 69 Year
  Sex: Male
  Weight: 118 kg

DRUGS (6)
  1. SUTENT [Suspect]
     Active Substance: SUNITINIB MALATE
     Indication: RENAL CELL CARCINOMA
     Dosage: 12.5 MG, UNK
     Route: 048
     Dates: start: 2009
  2. SUTENT [Suspect]
     Active Substance: SUNITINIB MALATE
     Dosage: 50 MG, 1X/DAY, ON 28 DAYS, OFF 14 DAYS
     Route: 048
  3. SUTENT [Suspect]
     Active Substance: SUNITINIB MALATE
     Dosage: 50 MG, CYCLIC (14 DAYS ON AND 7DAYS OFF)
     Route: 048
     Dates: start: 2010
  4. ATENOLOL. [Concomitant]
     Active Substance: ATENOLOL
     Indication: BLOOD PRESSURE MEASUREMENT
     Dosage: 50 MG, 1X/DAY
     Route: 048
     Dates: start: 2011
  5. AMLODIPINE BESYLATE. [Concomitant]
     Active Substance: AMLODIPINE BESYLATE
     Dosage: 2.5 MG, 2X/DAY
     Route: 048
     Dates: start: 2011
  6. NORCO [Concomitant]
     Active Substance: ACETAMINOPHEN\HYDROCODONE BITARTRATE
     Indication: PAIN
     Dosage: UNK

REACTIONS (10)
  - Chronic obstructive pulmonary disease [Fatal]
  - Vascular occlusion [Fatal]
  - Wound abscess [Recovered/Resolved]
  - Disease progression [Fatal]
  - Renal cell carcinoma [Fatal]
  - Cerebrovascular accident [Fatal]
  - Vomiting [Recovered/Resolved]
  - Hip fracture [Unknown]
  - Thrombosis [Fatal]
  - Aortic aneurysm [Fatal]

NARRATIVE: CASE EVENT DATE: 2011
